FAERS Safety Report 11148633 (Version 2)
Quarter: 2015Q2

REPORT INFORMATION
  Report Type: Spontaneous
  Country: US (occurrence: None)
  Receive Date: 20150527
  Receipt Date: 20150623
  Transmission Date: 20150821
  Serious: Yes (Death, Hospitalization)
  Sender: FDA-Public Use
  Company Number: INS201505-000211

PATIENT
  Age: 78 Year
  Sex: Male
  Weight: 106.1 kg

DRUGS (1)
  1. SUBSYS [Suspect]
     Active Substance: FENTANYL
     Indication: PAIN
     Dosage: 200 MCG, AS NEEDED
     Dates: start: 20150423

REACTIONS (1)
  - Death [None]

NARRATIVE: CASE EVENT DATE: 20150515
